FAERS Safety Report 7548941-0 (Version None)
Quarter: 2011Q2

REPORT INFORMATION
  Report Type: 
  Country: None (occurrence: None)
  Receive Date: 20110615
  Receipt Date: 20110523
  Transmission Date: 20111010
  Serious: Yes (Hospitalization, Other)
  Sender: FDA-Public Use
  Company Number: US-BAYER-201039885NA

PATIENT
  Age: 21 Year
  Sex: Female
  Weight: 43.084 kg

DRUGS (9)
  1. YAZ [Suspect]
     Indication: PRODUCT USED FOR UNKNOWN INDICATION
     Route: 048
     Dates: start: 20020901, end: 20060301
  2. ANTIEMETICS AND ANTINAUSEANTS [Concomitant]
  3. ROCEPHIN [Concomitant]
  4. FLAGYL [Concomitant]
  5. ZOSYN [Concomitant]
  6. YASMIN [Suspect]
     Indication: CONTRACEPTION
     Dosage: 1 DF, QD
     Route: 048
     Dates: start: 20020901, end: 20060301
  7. POLYMYCIN B SULFATE [Concomitant]
     Route: 047
  8. ANTIBIOTICS [Concomitant]
  9. INTRAVENOUS RINGERS [Concomitant]
     Route: 042

REACTIONS (7)
  - ABDOMINAL PAIN UPPER [None]
  - PAIN [None]
  - DYSPEPSIA [None]
  - PROCEDURAL PAIN [None]
  - CHOLECYSTITIS ACUTE [None]
  - CHOLELITHIASIS [None]
  - GALLBLADDER DISORDER [None]
